FAERS Safety Report 7926354-7 (Version None)
Quarter: 2011Q4

REPORT INFORMATION
  Report Type: 
  Country: None (occurrence: None)
  Receive Date: 20111118
  Receipt Date: 20111110
  Transmission Date: 20120403
  Serious: No
  Sender: FDA-Public Use
  Company Number: US-BIOGENIDEC-2011BI040238

PATIENT
  Age: 57 Year
  Sex: Female

DRUGS (2)
  1. TYSABRI [Suspect]
     Route: 042
     Dates: start: 20110714, end: 20111001
  2. TYSABRI [Suspect]
     Indication: MULTIPLE SCLEROSIS
     Route: 042
     Dates: start: 20050214, end: 20050214

REACTIONS (10)
  - BACK PAIN [None]
  - ABDOMINAL DISCOMFORT [None]
  - TREMOR [None]
  - BODY TEMPERATURE INCREASED [None]
  - URINARY TRACT INFECTION [None]
  - CHILLS [None]
  - CONSTIPATION [None]
  - HYPERSENSITIVITY [None]
  - RASH MACULAR [None]
  - PALLOR [None]
